FAERS Safety Report 7928081-9 (Version None)
Quarter: 2011Q4

REPORT INFORMATION
  Report Type: 
  Country: None (occurrence: None)
  Receive Date: 20111118
  Receipt Date: 20111114
  Transmission Date: 20120403
  Serious: Yes (Death)
  Sender: FDA-Public Use
  Company Number: NL-GLAXOSMITHKLINE-B0747393E

PATIENT
  Sex: Male

DRUGS (2)
  1. IFOSFAMIDE [Suspect]
     Indication: NEOPLASM
     Dosage: 3GM2 CYCLIC
     Route: 042
     Dates: start: 20110830
  2. PAZOPANIB [Suspect]
     Indication: NEOPLASM
     Dosage: 200MG PER DAY
     Route: 048
     Dates: start: 20110823, end: 20111014

REACTIONS (1)
  - DEATH [None]
